FAERS Safety Report 24965174 (Version 1)
Quarter: 2025Q1

REPORT INFORMATION
  Report Type: Spontaneous
  Country: CA (occurrence: CA)
  Receive Date: 20250213
  Receipt Date: 20250213
  Transmission Date: 20250409
  Serious: Yes (Hospitalization)
  Sender: ROCHE
  Company Number: CA-002147023-NVSC2025CA020579

PATIENT
  Age: 57 Year
  Sex: Male

DRUGS (1)
  1. OMALIZUMAB [Suspect]
     Active Substance: OMALIZUMAB
     Indication: Chronic spontaneous urticaria
     Dosage: 300 MG, Q4W
     Route: 050

REACTIONS (6)
  - Abdominal pain upper [Unknown]
  - Urticaria [Unknown]
  - Testicular swelling [Unknown]
  - Swelling face [Unknown]
  - Pruritus [Unknown]
  - Neck pain [Unknown]
